FAERS Safety Report 14604165 (Version 1)
Quarter: 2018Q1

REPORT INFORMATION
  Report Type: Spontaneous
  Country: US (occurrence: US)
  Receive Date: 20180305
  Receipt Date: 20180305
  Transmission Date: 20180509
  Serious: Yes (Other)
  Sender: FDA-Public Use
  Company Number: None

PATIENT
  Age: 63 Year
  Sex: Female
  Weight: 69.3 kg

DRUGS (5)
  1. NITROFURANTOIN. [Suspect]
     Active Substance: NITROFURANTOIN
     Indication: URINARY TRACT INFECTION
     Dosage: ?          QUANTITY:10 CAPSULE(S);?
     Route: 048
     Dates: start: 20180223, end: 20180226
  2. FLOVENT [Concomitant]
     Active Substance: FLUTICASONE PROPIONATE
  3. VITAMIN C [Concomitant]
     Active Substance: ASCORBIC ACID
  4. MULTI VITAMIN CALCIUM [Concomitant]
  5. VITAMIN D METAMUCIL [Concomitant]

REACTIONS (5)
  - Asthenia [None]
  - Gait disturbance [None]
  - Chills [None]
  - Insomnia [None]
  - Disorientation [None]

NARRATIVE: CASE EVENT DATE: 20180224
